FAERS Safety Report 9342807 (Version 2)
Quarter: 2014Q2

REPORT INFORMATION
  Report Type: Spontaneous
  Country: US (occurrence: US)
  Receive Date: 20130611
  Receipt Date: 20140411
  Transmission Date: 20141212
  Serious: Yes (Hospitalization)
  Sender: FDA-Public Use
  Company Number: US-GLAXOSMITHKLINE-A1001649A

PATIENT
  Age: 51 Year
  Sex: Female
  Weight: 107.7 kg

DRUGS (1)
  1. AVANDIA [Suspect]
     Indication: DIABETES MELLITUS
     Dosage: 4MG PER DAY
     Route: 048
     Dates: start: 20051014, end: 20070628

REACTIONS (6)
  - Myocardial infarction [Not Recovered/Not Resolved]
  - Cardiac failure congestive [Unknown]
  - Angina pectoris [Unknown]
  - Loss of consciousness [Unknown]
  - Chest pain [Unknown]
  - Angina unstable [Unknown]
